FAERS Safety Report 16838688 (Version 1)
Quarter: 2019Q3

REPORT INFORMATION
  Report Type: Spontaneous
  Country: US (occurrence: US)
  Receive Date: 20190731
  Receipt Date: 20190731
  Transmission Date: 20191005
  Serious: No
  Sender: FDA-Public Use
  Company Number: None

PATIENT

DRUGS (2)
  1. INTUNIV [Suspect]
     Active Substance: GUANFACINE HYDROCHLORIDE
  2. GUANFACINE. [Suspect]
     Active Substance: GUANFACINE

REACTIONS (11)
  - Sleep disorder [None]
  - Abnormal behaviour [None]
  - Sleep talking [None]
  - Product dispensing error [None]
  - Incorrect product dosage form administered [None]
  - Urinary incontinence [None]
  - Educational problem [None]
  - Nightmare [None]
  - Somnambulism [None]
  - Anger [None]
  - Social problem [None]
